FAERS Safety Report 10191930 (Version 2)
Quarter: 2014Q2

REPORT INFORMATION
  Report Type: Spontaneous
  Country: US (occurrence: US)
  Receive Date: 20140523
  Receipt Date: 20140523
  Transmission Date: 20141212
  Serious: No
  Sender: FDA-Public Use
  Company Number: US-AMGEN INC.-USASP2014028066

PATIENT
  Age: 74 Year
  Sex: Female

DRUGS (5)
  1. PROLIA [Suspect]
     Indication: OSTEOPOROSIS POSTMENOPAUSAL
     Dosage: UNK
     Route: 065
     Dates: start: 201309
  2. LEVOTHYROXINE [Concomitant]
     Dosage: 100 MUG, UNK
  3. CRESTOR [Concomitant]
     Dosage: 5 MG, UNK
  4. CALCIUM [Concomitant]
     Dosage: 1200 ABSENT, UNK
  5. VITAMIN D                          /00107901/ [Concomitant]
     Dosage: 1000 ABSENT, UNK

REACTIONS (6)
  - Acne [Not Recovered/Not Resolved]
  - Furuncle [Not Recovered/Not Resolved]
  - Pain [Unknown]
  - Inflammation [Unknown]
  - Impaired healing [Not Recovered/Not Resolved]
  - Erythema [Not Recovered/Not Resolved]
